FAERS Safety Report 5811459-7 (Version None)
Quarter: 2008Q3

REPORT INFORMATION
  Report Type: 
  Country: None (occurrence: None)
  Receive Date: 20080702
  Receipt Date: 20080623
  Transmission Date: 20090109
  Serious: Yes (Other)
  Sender: FDA-Public Use
  Company Number: CART-10490

PATIENT
  Age: 14 Year
  Sex: Female

DRUGS (1)
  1. CARTICEL [Suspect]
     Indication: ARTHROPATHY
     Dosage: 1 NA, ONCE, INTRA-ARTICULAR
     Route: 014
     Dates: start: 20050420, end: 20050420

REACTIONS (1)
  - CHONDROMATOSIS [None]
